FAERS Safety Report 15968104 (Version 1)
Quarter: 2019Q1

REPORT INFORMATION
  Report Type: Report from Study
  Country: IT (occurrence: IT)
  Receive Date: 20190215
  Receipt Date: 20190215
  Transmission Date: 20190418
  Serious: Yes (Death)
  Sender: FDA-Public Use
  Company Number: IT-PFIZER INC-2019069761

PATIENT

DRUGS (5)
  1. BEVACIZUMAB. [Suspect]
     Active Substance: BEVACIZUMAB
     Indication: RECTAL ADENOCARCINOMA
     Dosage: 5 MG/KG, CYCLIC (OVER 30 MIN)
     Route: 042
  2. OXALIPLATIN. [Suspect]
     Active Substance: OXALIPLATIN
     Indication: RECTAL ADENOCARCINOMA
     Dosage: 85 MG/M2, CYCLIC
  3. FLUOROURACIL. [Suspect]
     Active Substance: FLUOROURACIL
     Indication: RECTAL ADENOCARCINOMA
     Dosage: 3200 MG/M2, CYCLIC (48-H CONTINUOUS INFUSION (CI) STARTING ON DAY 1)
  4. IRINOTECAN HCL [Suspect]
     Active Substance: IRINOTECAN HYDROCHLORIDE
     Indication: RECTAL ADENOCARCINOMA
     Dosage: 165 MG/M2, CYCLIC (OVER 1 H)
  5. CALCIUM FOLINATE [Suspect]
     Active Substance: LEUCOVORIN CALCIUM
     Indication: RECTAL ADENOCARCINOMA
     Dosage: 200 MG/M2, CYCLIC (OVER 2 H ON DAY 1)

REACTIONS (2)
  - Sepsis [Fatal]
  - Intestinal perforation [Fatal]
